FAERS Safety Report 22372460 (Version 2)
Quarter: 2023Q2

REPORT INFORMATION
  Report Type: Report from Study
  Country: GB (occurrence: GB)
  Receive Date: 20230526
  Receipt Date: 20230602
  Transmission Date: 20230721
  Serious: Yes (Hospitalization)
  Sender: FDA-Public Use
  Company Number: GB-SA-SAC20230515001495

PATIENT

DRUGS (3)
  1. CEMIPLIMAB [Suspect]
     Active Substance: CEMIPLIMAB
     Indication: Penis carcinoma metastatic
     Dosage: 350 MG, Q3W
     Route: 042
     Dates: start: 20220117, end: 20230421
  2. LEVOTHYROXINE [Concomitant]
     Active Substance: LEVOTHYROXINE
     Indication: Hypothyroidism
     Dosage: 50 UG, QD
     Route: 048
     Dates: start: 20220708
  3. IRON [Concomitant]
     Active Substance: IRON
     Indication: Blood iron decreased
     Dosage: 200 MG, BID
     Route: 048
     Dates: start: 20230517

REACTIONS (1)
  - Toxic epidermal necrolysis [Not Recovered/Not Resolved]

NARRATIVE: CASE EVENT DATE: 20230510
